FAERS Safety Report 25199321 (Version 1)
Quarter: 2025Q2

REPORT INFORMATION
  Report Type: Spontaneous
  Country: US (occurrence: None)
  Receive Date: 20250415
  Receipt Date: 20250415
  Transmission Date: 20250716
  Serious: Yes (Other)
  Sender: FDA-CTU
  Company Number: None

PATIENT
  Age: 43 Year
  Weight: 79.65 kg

DRUGS (1)
  1. BIVIGAM [Suspect]
     Active Substance: HUMAN IMMUNOGLOBULIN G
     Indication: Autonomic nervous system imbalance
     Route: 042
     Dates: start: 20211204

REACTIONS (3)
  - Swollen tongue [None]
  - Tongue discolouration [None]
  - Rash [None]

NARRATIVE: CASE EVENT DATE: 20250414
